FAERS Safety Report 18336964 (Version 2)
Quarter: 2020Q4

REPORT INFORMATION
  Report Type: Report from Study
  Country: FR (occurrence: FR)
  Receive Date: 20201001
  Receipt Date: 20201015
  Transmission Date: 20210113
  Serious: Yes (Death)
  Sender: FDA-Public Use
  Company Number: FR-BAXTER-2020BAX019987

PATIENT
  Age: 52 Year
  Sex: Male

DRUGS (5)
  1. ENDOXAN 1000 MG, POUDRE POUR SOLUTIONINJECTABLE [Suspect]
     Active Substance: CYCLOPHOSPHAMIDE
     Indication: BURKITT^S LYMPHOMA
     Dosage: ONE CYCLE OF COPADM REGIMEN
     Route: 065
  2. PREDNISOLONE. [Suspect]
     Active Substance: PREDNISOLONE
     Indication: BURKITT^S LYMPHOMA
     Dosage: ONE CYCLE OF COPADM REGIMEN
     Route: 065
  3. DOXIL [Suspect]
     Active Substance: DOXORUBICIN HYDROCHLORIDE
     Indication: BURKITT^S LYMPHOMA
     Route: 065
  4. METHOTREXATE. [Suspect]
     Active Substance: METHOTREXATE
     Indication: BURKITT^S LYMPHOMA
     Dosage: ONE CYCLE OF COPADM REGIMEN
     Route: 065
  5. VINCRISTINE [Suspect]
     Active Substance: VINCRISTINE
     Indication: BURKITT^S LYMPHOMA
     Dosage: ONE CYCLE OF COPADM REGIMEN
     Route: 065

REACTIONS (3)
  - Cytomegalovirus infection reactivation [Fatal]
  - Febrile neutropenia [Fatal]
  - Aspergillus infection [Fatal]
